FAERS Safety Report 20903616 (Version 1)
Quarter: 2022Q2

REPORT INFORMATION
  Report Type: Spontaneous
  Country: ES (occurrence: ES)
  Receive Date: 20220602
  Receipt Date: 20220602
  Transmission Date: 20220720
  Serious: Yes (Life-Threatening, Hospitalization)
  Sender: FDA-Public Use
  Company Number: None

PATIENT
  Age: 81 Year
  Sex: Female

DRUGS (4)
  1. OLANZAPINE [Suspect]
     Active Substance: OLANZAPINE
     Indication: Hallucination, visual
     Dosage: OLANZAPINA (2770A) , UNIT DOSE : 10 MG , FREQUENCY TIME : 24 HOURS , DURATION : 10 DAYS
     Route: 048
     Dates: start: 20211227, end: 20220105
  2. KEPPRA [Concomitant]
     Active Substance: LEVETIRACETAM
     Indication: Epilepsy
     Dosage: UNIT DOSE : 2.5 G , FREQUENCY TIME : 24 HOURS,  60 TABLETS , STRENGTH : 250 MG
     Route: 048
     Dates: start: 201604
  3. LEVOTHYROXINE SODIUM [Concomitant]
     Active Substance: LEVOTHYROXINE SODIUM
     Indication: Hypothyroidism
     Dosage: UNIT DOSE : 75 MG , FREQUENCY TIME : 24 HOURS , STRENGTH : 75 MCG , 100 TABLETS
     Route: 048
     Dates: start: 201309
  4. SIMVASTATIN [Concomitant]
     Active Substance: SIMVASTATIN
     Indication: Dyslipidaemia
     Dosage: UNIT DOSE : 20 MG , FREQUENCY TIME : 24 HOURS , SIMVASTATINA (1023A)
     Route: 048
     Dates: start: 201808

REACTIONS (1)
  - Pulmonary embolism [Recovered/Resolved]

NARRATIVE: CASE EVENT DATE: 20220104
